FAERS Safety Report 4390062-2 (Version None)
Quarter: 2004Q2

REPORT INFORMATION
  Report Type: 
  Country: None (occurrence: None)
  Receive Date: 20040630
  Receipt Date: 20040618
  Transmission Date: 20050107
  Serious: Yes (Hospitalization)
  Sender: FDA-Public Use
  Company Number: SE-JNJFOC-20030906144

PATIENT
  Age: 50 Year
  Sex: Female

DRUGS (5)
  1. REMICADE [Suspect]
     Indication: RHEUMATOID ARTHRITIS
     Dosage: 200-300MG GIVEN
     Dates: start: 20001018, end: 20030903
  2. LEVAXIN (LEVOTHYROXINE SODIUM) [Concomitant]
  3. METHOTREXATE [Concomitant]
  4. ALVEDON (PARACETAMOL) [Concomitant]
  5. OMEGA 3 (FISH OIL) [Concomitant]

REACTIONS (12)
  - ANGIONEUROTIC OEDEMA [None]
  - APHONIA [None]
  - BLINDNESS [None]
  - CEREBROVASCULAR ACCIDENT [None]
  - DISTURBANCE IN ATTENTION [None]
  - HYPERSENSITIVITY [None]
  - LARYNGEAL OEDEMA [None]
  - MEMORY IMPAIRMENT [None]
  - PARESIS [None]
  - PHARYNGOLARYNGEAL PAIN [None]
  - PHOTOSENSITIVITY REACTION [None]
  - SERUM SICKNESS [None]
